FAERS Safety Report 24790696 (Version 2)
Quarter: 2025Q2

REPORT INFORMATION
  Report Type: Spontaneous
  Country: PL (occurrence: PL)
  Receive Date: 20241230
  Receipt Date: 20250627
  Transmission Date: 20250716
  Serious: Yes (Death, Hospitalization)
  Sender: SANDOZ
  Company Number: PL-TEVA-2018-PL-982784

PATIENT
  Age: 8 Month
  Sex: Male

DRUGS (12)
  1. BUSULFAN [Suspect]
     Active Substance: BUSULFAN
     Indication: Transplant
     Dosage: 4X4X1.0 MG/KG MG/KG
     Route: 042
  2. BUSULFAN [Suspect]
     Active Substance: BUSULFAN
     Indication: Stem cell transplant
  3. CAMPATH [Suspect]
     Active Substance: ALEMTUZUMAB
     Indication: Prophylaxis against graft versus host disease
     Dosage: 3X 0.2 MG/KG, TID MG/KG
     Route: 065
  4. CAMPATH [Suspect]
     Active Substance: ALEMTUZUMAB
     Indication: Graft versus host disease
  5. FLUDARABINE PHOSPHATE [Suspect]
     Active Substance: FLUDARABINE PHOSPHATE
     Indication: Transplant
     Dosage: 40 MG/M2, QIDMG/M2
     Route: 042
  6. SOLU-MEDROL [Suspect]
     Active Substance: METHYLPREDNISOLONE SODIUM SUCCINATE
     Indication: Chronic granulomatous disease
     Route: 065
  7. VFEND [Suspect]
     Active Substance: VORICONAZOLE
     Indication: Antifungal prophylaxis
     Dosage: 2X3 MG/KG, BIDMG/KG
     Route: 048
  8. VFEND [Suspect]
     Active Substance: VORICONAZOLE
     Dosage: 3 MG/KG, BID MG/KG
     Route: 048
  9. VFEND [Suspect]
     Active Substance: VORICONAZOLE
     Route: 048
  10. VORICONAZOLE [Suspect]
     Active Substance: VORICONAZOLE
     Indication: Paronychia
     Route: 042
  11. AMBISOME [Concomitant]
     Active Substance: AMPHOTERICIN B
     Indication: Product used for unknown indication
     Dosage: 1X3 MG/KG, QD MG/KG
     Route: 042
  12. FUNGIZONE [Concomitant]
     Active Substance: AMPHOTERICIN B
     Indication: Product used for unknown indication
     Dosage: 4X12 MG/KG, UNK MG/KG
     Route: 048

REACTIONS (14)
  - Neurological decompensation [Fatal]
  - Cerebral aspergillosis [Fatal]
  - Hydrocephalus [Fatal]
  - Cerebral disorder [Fatal]
  - Hypertensive crisis [Fatal]
  - Altered state of consciousness [Fatal]
  - Paronychia [Fatal]
  - Hypertension [Fatal]
  - Epilepsy [Fatal]
  - Hemiplegia [Fatal]
  - Loss of consciousness [Fatal]
  - Mucosal inflammation [Fatal]
  - Drug ineffective [Fatal]
  - Pyrexia [Fatal]

NARRATIVE: CASE EVENT DATE: 20110101
